FAERS Safety Report 17294652 (Version 3)
Quarter: 2020Q2

REPORT INFORMATION
  Report Type: Spontaneous
  Country: US (occurrence: US)
  Receive Date: 20200121
  Receipt Date: 20200529
  Transmission Date: 20200713
  Serious: Yes (Other)
  Sender: FDA-Public Use
  Company Number: US-PFIZER INC-2020022913

PATIENT
  Age: 62 Year
  Sex: Male

DRUGS (2)
  1. XELJANZ XR [Suspect]
     Active Substance: TOFACITINIB CITRATE
     Indication: RHEUMATOID ARTHRITIS
     Dosage: 11 MG, DAILY
     Route: 048
     Dates: start: 20191019
  2. METHOTREXATE. [Concomitant]
     Active Substance: METHOTREXATE
     Dosage: UNK

REACTIONS (12)
  - Gait disturbance [Unknown]
  - Thrombosis [Unknown]
  - Dysstasia [Unknown]
  - Balance disorder [Unknown]
  - Paraesthesia [Not Recovered/Not Resolved]
  - Blood pressure abnormal [Unknown]
  - Neuropathy peripheral [Unknown]
  - Musculoskeletal discomfort [Unknown]
  - Swelling [Unknown]
  - Fluid retention [Unknown]
  - Condition aggravated [Not Recovered/Not Resolved]
  - Hypoaesthesia [Not Recovered/Not Resolved]

NARRATIVE: CASE EVENT DATE: 20200428
